FAERS Safety Report 5546467-7 (Version None)
Quarter: 2007Q4

REPORT INFORMATION
  Report Type: 
  Country: None (occurrence: None)
  Receive Date: 20071206
  Receipt Date: 20071206
  Transmission Date: 20080405
  Serious: Yes (Other)
  Sender: FDA-Public Use
  Company Number: None

PATIENT
  Age: 60 Year
  Sex: Female
  Weight: 59.8748 kg

DRUGS (1)
  1. VYTORIN [Suspect]
     Indication: BLOOD CHOLESTEROL
     Dosage: 1  DAILY BY MOUTH
     Route: 048
     Dates: start: 20071120, end: 20071126

REACTIONS (2)
  - ARTHRALGIA [None]
  - CHEST DISCOMFORT [None]
